FAERS Safety Report 6348204-5 (Version None)
Quarter: 2009Q3

REPORT INFORMATION
  Report Type: 
  Country: None (occurrence: None)
  Receive Date: 20090908
  Receipt Date: 20090828
  Transmission Date: 20100115
  Serious: Yes (Other)
  Sender: FDA-Public Use
  Company Number: 060001L09IND

PATIENT
  Age: 28 Year
  Sex: Female

DRUGS (4)
  1. CLOMIPHENE CITRATE [Suspect]
     Indication: OVULATION INDUCTION
     Dosage: 200 MG, 1 IN 1 DAYS; 150 MG; 200 MG; 200 MG 1 CYCLE
  2. LETRAZOLE (LETROZOLE) [Concomitant]
  3. HCG (CHORIONIC GONADOTROPHIN) [Concomitant]
  4. MICRONISED P4 VAGINAL PESSARIES (PROGESTERONE) [Concomitant]

REACTIONS (2)
  - HETEROTOPIC PREGNANCY [None]
  - MULTIPLE PREGNANCY [None]
